FAERS Safety Report 6722503-7 (Version None)
Quarter: 2010Q2

REPORT INFORMATION
  Report Type: 
  Country: None (occurrence: None)
  Receive Date: 20100512
  Receipt Date: 20100503
  Transmission Date: 20101027
  Serious: Yes (Life-Threatening, Other)
  Sender: FDA-Public Use
  Company Number: US-NAPPMUNDI-USA-2010-0042842

PATIENT
  Sex: Female

DRUGS (1)
  1. OXYCONTIN [Suspect]
     Indication: PROCEDURAL PAIN
     Dosage: 10 MG, UNK

REACTIONS (2)
  - RESPIRATORY ARREST [None]
  - RESPIRATORY DEPRESSION [None]
